FAERS Safety Report 12583376 (Version 1)
Quarter: 2016Q3

REPORT INFORMATION
  Report Type: Other
  Country: US (occurrence: US)
  Receive Date: 20160722
  Receipt Date: 20160722
  Transmission Date: 20161109
  Serious: Yes (Other)
  Sender: FDA-Public Use
  Company Number: US-ACORDA-ACO_126218_2016

PATIENT
  Age: 66 Year
  Sex: Female

DRUGS (1)
  1. AMPYRA [Suspect]
     Active Substance: DALFAMPRIDINE
     Indication: MULTIPLE SCLEROSIS
     Dosage: 10 MG, BID
     Route: 065

REACTIONS (7)
  - Colectomy [Unknown]
  - Pollakiuria [Unknown]
  - Visual impairment [Unknown]
  - Diarrhoea [Unknown]
  - Photophobia [Unknown]
  - Pain in extremity [Unknown]
  - Drug ineffective [Unknown]

NARRATIVE: CASE EVENT DATE: 20160711
